FAERS Safety Report 14802665 (Version 3)
Quarter: 2018Q2

REPORT INFORMATION
  Report Type: Spontaneous
  Country: US (occurrence: US)
  Receive Date: 20180424
  Receipt Date: 20180605
  Transmission Date: 20180711
  Serious: No
  Sender: FDA-Public Use
  Company Number: US-ACTELION-A-NJ2018-171155

PATIENT
  Age: 56 Year
  Sex: Female
  Weight: 67.12 kg

DRUGS (3)
  1. REMODULIN [Suspect]
     Active Substance: TREPROSTINIL
     Indication: PULMONARY HYPERTENSION
     Dosage: 0.048 MCG/KG
     Route: 058
  2. OPSUMIT [Suspect]
     Active Substance: MACITENTAN
     Indication: PULMONARY HYPERTENSION
     Dosage: 10 MG, QD
     Route: 048
     Dates: end: 201805
  3. PLOGREL [Concomitant]

REACTIONS (4)
  - Peripheral swelling [Unknown]
  - Infusion site pain [Unknown]
  - Infusion site erythema [Unknown]
  - Unevaluable event [Unknown]
